FAERS Safety Report 22772520 (Version 5)
Quarter: 2023Q4

REPORT INFORMATION
  Report Type: Report from Study
  Country: US (occurrence: US)
  Receive Date: 20230801
  Receipt Date: 20231214
  Transmission Date: 20240109
  Serious: Yes (Other)
  Sender: FDA-Public Use
  Company Number: US-002147023-NVSC2023US167598

PATIENT
  Age: 63 Year
  Sex: Male

DRUGS (1)
  1. ENTRESTO [Suspect]
     Active Substance: SACUBITRIL\VALSARTAN
     Indication: Product used for unknown indication
     Dosage: UNK
     Route: 065
     Dates: start: 202304

REACTIONS (10)
  - Coronary artery occlusion [Unknown]
  - Ejection fraction decreased [Recovering/Resolving]
  - Oxygen saturation decreased [Recovering/Resolving]
  - Weight decreased [Unknown]
  - Memory impairment [Unknown]
  - Disturbance in attention [Unknown]
  - Insomnia [Unknown]
  - Fatigue [Unknown]
  - Anxiety [Unknown]
  - Feeling of despair [Unknown]
